FAERS Safety Report 9846864 (Version 3)
Quarter: 2014Q2

REPORT INFORMATION
  Report Type: Spontaneous
  Country: JP (occurrence: JP)
  Receive Date: 20140127
  Receipt Date: 20140522
  Transmission Date: 20141212
  Serious: Yes (Hospitalization, Other)
  Sender: FDA-Public Use
  Company Number: JP-PFIZER INC-2014021408

PATIENT
  Age: 69 Year
  Sex: Male

DRUGS (1)
  1. TORISEL [Suspect]
     Indication: RENAL CELL CARCINOMA
     Dosage: UNK

REACTIONS (2)
  - Humerus fracture [Recovering/Resolving]
  - Fall [Recovering/Resolving]
